FAERS Safety Report 6112989-3 (Version None)
Quarter: 2009Q1

REPORT INFORMATION
  Report Type: 
  Country: None (occurrence: None)
  Receive Date: 20090312
  Receipt Date: 20090305
  Transmission Date: 20090719
  Serious: Yes (Congenital Anomaly)
  Sender: FDA-Public Use
  Company Number: A0743144A

PATIENT
  Sex: Male

DRUGS (13)
  1. PAXIL [Suspect]
     Indication: DRUG USE FOR UNKNOWN INDICATION
     Dosage: 25MG PER DAY
     Dates: start: 20020901, end: 20070501
  2. PAROXETINE HYDROCHLORIDE [Suspect]
     Indication: DRUG USE FOR UNKNOWN INDICATION
     Dosage: 20MG PER DAY
     Dates: start: 20020901, end: 20070501
  3. PAXIL CR [Suspect]
     Indication: DRUG USE FOR UNKNOWN INDICATION
  4. VITAMIN TAB [Concomitant]
  5. NEXIUM [Concomitant]
  6. PROTONIX [Concomitant]
  7. CARAFATE [Concomitant]
  8. GAVISCON [Concomitant]
  9. DEMEROL [Concomitant]
     Dates: start: 20050630
  10. PHENERGAN [Concomitant]
  11. PROCARDIA [Concomitant]
     Dates: end: 20050819
  12. AMBIEN [Concomitant]
  13. AUGMENTIN '125' [Concomitant]

REACTIONS (2)
  - CRANIOSYNOSTOSIS [None]
  - DRUG EXPOSURE DURING PREGNANCY [None]
